FAERS Safety Report 10108277 (Version 1)
Quarter: 2014Q2

REPORT INFORMATION
  Report Type: Report from Study
  Country: FR (occurrence: FR)
  Receive Date: 20140425
  Receipt Date: 20140425
  Transmission Date: 20141212
  Serious: Yes (Hospitalization)
  Sender: FDA-Public Use
  Company Number: FR-ROCHE-1384420

PATIENT
  Sex: Female

DRUGS (6)
  1. RITUXIMAB [Suspect]
     Indication: RHEUMATOID ARTHRITIS
     Route: 065
     Dates: start: 20080619
  2. RITUXIMAB [Suspect]
     Route: 065
     Dates: start: 20080703
  3. RITUXIMAB [Suspect]
     Route: 065
     Dates: start: 20100118
  4. RITUXIMAB [Suspect]
     Route: 065
     Dates: start: 20100202
  5. TOCILIZUMAB [Suspect]
     Indication: RHEUMATOID ARTHRITIS
     Route: 065
  6. CORTANCYL [Concomitant]
     Route: 065

REACTIONS (22)
  - Ill-defined disorder [Recovered/Resolved]
  - Humerus fracture [Unknown]
  - Hepatocellular injury [Recovered/Resolved]
  - Arthritis bacterial [Recovered/Resolved]
  - Pyrexia [Recovered/Resolved]
  - Autoimmune hepatitis [Not Recovered/Not Resolved]
  - Lymphadenopathy [Unknown]
  - Weight decreased [Not Recovered/Not Resolved]
  - Headache [Unknown]
  - Aphthous stomatitis [Unknown]
  - Dry mouth [Unknown]
  - Nausea [Unknown]
  - Tooth infection [Recovered/Resolved]
  - Vomiting [Unknown]
  - Asthenia [Not Recovered/Not Resolved]
  - Abdominal pain upper [Unknown]
  - Cough [Unknown]
  - Bronchitis [Unknown]
  - Thrombocytopenia [Unknown]
  - Fall [Unknown]
  - Rib fracture [Unknown]
  - Tracheitis [Recovered/Resolved]
